FAERS Safety Report 8578004-7 (Version None)
Quarter: 2012Q3

REPORT INFORMATION
  Report Type: 
  Country: None (occurrence: None)
  Receive Date: 20120808
  Receipt Date: 20120730
  Transmission Date: 20120928
  Serious: Yes (Hospitalization)
  Sender: FDA-Public Use
  Company Number: FR-BRISTOL-MYERS SQUIBB COMPANY-16833402

PATIENT
  Age: 80 Year
  Sex: Female

DRUGS (12)
  1. VALACICLOVIR [Suspect]
     Indication: HERPES ZOSTER
     Dosage: TABS
     Route: 048
     Dates: start: 20120530, end: 20120604
  2. PREVISCAN [Concomitant]
     Dosage: 20MG TABS UNK-28MAY12 31MAY12-ONG
     Route: 048
  3. REPAGLINIDE [Concomitant]
     Dosage: TABS
     Route: 048
  4. BISOPROLOL FUMARATE [Concomitant]
     Dosage: 2.5MG TABS
     Route: 048
     Dates: start: 20120530
  5. LEVOTHYROXINE SODIUM [Concomitant]
     Dosage: TABS
     Route: 048
  6. PANTOPRAZOLE [Concomitant]
     Dosage: GASTRO RESISTANT GRANULES
     Route: 048
     Dates: start: 20120520
  7. NICARDIPINE HCL [Concomitant]
     Dosage: PROLONGED RELEASE CAPSULE
     Route: 048
     Dates: start: 20120520
  8. ATACAND [Concomitant]
     Dosage: 4MG TABS
     Route: 048
  9. GLUCOPHAGE [Suspect]
     Route: 048
     Dates: end: 20120604
  10. ACETAMINOPHEN [Concomitant]
     Dosage: 500MG,MAXIMUM DOSE
     Route: 048
     Dates: start: 20120518
  11. CRESTOR [Suspect]
     Route: 048
     Dates: end: 20120604
  12. ASPIRIN [Concomitant]
     Dosage: POWDER AND SOLVENT FOR ORAL SOLUTION
     Route: 048

REACTIONS (1)
  - RENAL FAILURE ACUTE [None]
